FAERS Safety Report 4643818-2 (Version None)
Quarter: 2005Q2

REPORT INFORMATION
  Report Type: 
  Country: None (occurrence: None)
  Receive Date: 20050422
  Receipt Date: 20050422
  Transmission Date: 20051028
  Serious: Yes (Other)
  Sender: FDA-Public Use
  Company Number: None

PATIENT
  Age: 83 Year
  Sex: Male
  Weight: 89.4 kg

DRUGS (21)
  1. MOXIFLOXACIN HCL [Suspect]
  2. ALLOPURINOL [Concomitant]
  3. LIDOCAINE [Concomitant]
  4. PREDNISOLONE ACETATE [Concomitant]
  5. TIMOLOL MALEATE [Concomitant]
  6. PROPOXYPHENE N [Concomitant]
  7. ALBUTEROL [Concomitant]
  8. ARTIFICIAL TEARS PVA [Concomitant]
  9. OMEPRAZOLE [Concomitant]
  10. MOXIFLOXACIN HCL [Concomitant]
  11. AMLODIPINE BESYLATE [Concomitant]
  12. MENTHOL /METHYL SALIC [Concomitant]
  13. DOCUSATE NA [Concomitant]
  14. COLCHICINE [Concomitant]
  15. HYDROXYZINE PAMOATE [Concomitant]
  16. IPATROPIUM BROMIDE [Concomitant]
  17. MILK OF MAGNESIA [Concomitant]
  18. RANITIDINE HCL [Concomitant]
  19. SENNOSIDES [Concomitant]
  20. SIMVASTATIN [Concomitant]
  21. TAMSULOSIN HCL [Concomitant]

REACTIONS (1)
  - CHEST PAIN [None]
